FAERS Safety Report 8903198 (Version 1)
Quarter: 2012Q4

REPORT INFORMATION
  Report Type: 
  Country: JP (occurrence: JP)
  Receive Date: 20121113
  Receipt Date: 20121113
  Transmission Date: 20130627
  Serious: Yes (Life-Threatening)
  Sender: FDA-Public Use
  Company Number: JP-ASTRAZENECA-2012SE84436

PATIENT
  Age: 90 Year

DRUGS (1)
  1. DIPRIVAN [Suspect]
     Indication: SEDATION
     Dosage: Dose unknown
     Route: 042

REACTIONS (2)
  - Respiratory arrest [Unknown]
  - Blood pressure decreased [Unknown]
